FAERS Safety Report 8927189 (Version 2)
Quarter: 2012Q4

REPORT INFORMATION
  Report Type: 
  Country: US (occurrence: US)
  Receive Date: 20121127
  Receipt Date: 20121203
  Transmission Date: 20130627
  Serious: No
  Sender: FDA-Public Use
  Company Number: US-TEVA-371592USA

PATIENT
  Sex: Female

DRUGS (2)
  1. PROAIR HFA [Suspect]
     Indication: BRONCHITIS
     Dates: start: 20121013
  2. PROAIR HFA [Suspect]
     Indication: BRONCHOSPASM

REACTIONS (1)
  - Drug ineffective [Unknown]
